FAERS Safety Report 21304886 (Version 1)
Quarter: 2022Q3

REPORT INFORMATION
  Report Type: Spontaneous
  Country: US (occurrence: US)
  Receive Date: 20220907
  Receipt Date: 20220907
  Transmission Date: 20221026
  Serious: No
  Sender: FDA-Public Use
  Company Number: US-3M-2021-US-024117

PATIENT
  Age: 45 Year
  Sex: Female
  Weight: 58.97 kg

DRUGS (1)
  1. PERIDEX [Suspect]
     Active Substance: CHLORHEXIDINE GLUCONATE
     Indication: Product used for unknown indication
     Dosage: SWISH AND SPIT 1 TIME ONLY (SOLUTION WAS DILUTED TO 50% WITH UNKNOWN SUBSTANCE)
     Route: 048
     Dates: start: 20211103, end: 20211103

REACTIONS (3)
  - Hypoaesthesia [Recovered/Resolved]
  - Taste disorder [Recovered/Resolved]
  - Intentional product misuse [Recovered/Resolved]

NARRATIVE: CASE EVENT DATE: 20211103
